FAERS Safety Report 8060384-2 (Version None)
Quarter: 2012Q1

REPORT INFORMATION
  Report Type: 
  Country: None (occurrence: None)
  Receive Date: 20120120
  Receipt Date: 20120113
  Transmission Date: 20120608
  Serious: Yes (Other)
  Sender: FDA-Public Use
  Company Number: FR-PFIZER INC-2012011611

PATIENT
  Age: 51 Year
  Sex: Female

DRUGS (2)
  1. CYTARABINE [Suspect]
     Indication: ACUTE LEUKAEMIA
     Dosage: 320 MG, 1X/DAY
     Route: 042
     Dates: start: 20110211, end: 20110217
  2. CERUBIDINE [Suspect]
     Indication: ACUTE LEUKAEMIA
     Dosage: 96 MG, 1X/DAY
     Route: 042
     Dates: start: 20110211, end: 20110213

REACTIONS (1)
  - BONE MARROW FAILURE [None]
